FAERS Safety Report 22529227 (Version 9)
Quarter: 2025Q4

REPORT INFORMATION
  Report Type: Report from Study
  Country: GB (occurrence: GB)
  Receive Date: 20230607
  Receipt Date: 20251231
  Transmission Date: 20260118
  Serious: Yes (Hospitalization, Other)
  Sender: NOVARTIS
  Company Number: GB-002147023-NVSC2023GB126338

PATIENT
  Sex: Male

DRUGS (6)
  1. COSENTYX [Suspect]
     Active Substance: SECUKINUMAB
     Indication: Psoriatic arthropathy
     Dosage: 300 MG, QMO
     Route: 058
     Dates: start: 20190101
  2. COSENTYX [Suspect]
     Active Substance: SECUKINUMAB
     Dosage: 300 MG, QMO (ONE PEN)
     Route: 058
     Dates: start: 202102
  3. COSENTYX [Suspect]
     Active Substance: SECUKINUMAB
     Dosage: UNK (LAST DOSE IN MAY)
     Route: 058
  4. COSENTYX [Suspect]
     Active Substance: SECUKINUMAB
     Dosage: 300 MG, QMO
     Route: 058
  5. COSENTYX [Suspect]
     Active Substance: SECUKINUMAB
     Dosage: 300 MG, QMO
     Route: 058
     Dates: start: 2021
  6. COSENTYX [Suspect]
     Active Substance: SECUKINUMAB
     Dosage: 300 MG, QMO
     Route: 058
     Dates: start: 20210217

REACTIONS (17)
  - Nail disorder [Unknown]
  - Pain [Unknown]
  - Urinary tract infection [Unknown]
  - Infection [Unknown]
  - Pneumonia [Unknown]
  - Sepsis [Unknown]
  - Lower respiratory tract infection [Unknown]
  - Intervertebral disc disorder [Unknown]
  - Influenza [Unknown]
  - Psoriatic arthropathy [Unknown]
  - Femur fracture [Unknown]
  - Osteoporosis [Unknown]
  - COVID-19 [Unknown]
  - Malaise [Unknown]
  - Inappropriate schedule of product administration [Unknown]
  - Pharyngitis [Unknown]
  - Cystitis [Unknown]

NARRATIVE: CASE EVENT DATE: 20241223
